FAERS Safety Report 16072465 (Version 1)
Quarter: 2019Q1

REPORT INFORMATION
  Report Type: Report from Study
  Country: BR (occurrence: BR)
  Receive Date: 20190314
  Receipt Date: 20190314
  Transmission Date: 20190418
  Serious: Yes (Death, Hospitalization)
  Sender: FDA-Public Use
  Company Number: BR-ELI_LILLY_AND_COMPANY-BR201903005918

PATIENT
  Age: 66 Year
  Sex: Male

DRUGS (1)
  1. CETUXIMAB. [Suspect]
     Active Substance: CETUXIMAB
     Indication: PRODUCT USED FOR UNKNOWN INDICATION
     Dosage: UNK UNK, ONCE IN FIFTEEN DAYS
     Dates: start: 20181016

REACTIONS (8)
  - Off label use [Unknown]
  - Decreased appetite [Unknown]
  - Liver disorder [Fatal]
  - Poor quality sleep [Unknown]
  - Vomiting [Unknown]
  - Asthenia [Unknown]
  - Renal disorder [Fatal]
  - Nodule [Fatal]

NARRATIVE: CASE EVENT DATE: 20181226
